FAERS Safety Report 9613407 (Version 1)
Quarter: 2013Q4

REPORT INFORMATION
  Report Type: Spontaneous
  Country: FR (occurrence: FR)
  Receive Date: 20131010
  Receipt Date: 20131010
  Transmission Date: 20140711
  Serious: Yes (Other)
  Sender: FDA-Public Use
  Company Number: FR-ABBVIE-13P-056-1156038-00

PATIENT
  Age: 37 Year
  Sex: Male

DRUGS (1)
  1. DEPAKOTE [Suspect]
     Indication: AFFECTIVE DISORDER
     Dosage: DAILY
     Route: 048

REACTIONS (3)
  - Bipolar disorder [Unknown]
  - Memory impairment [Unknown]
  - Weight increased [Unknown]
